FAERS Safety Report 11125862 (Version 1)
Quarter: 2015Q2

REPORT INFORMATION
  Report Type: Spontaneous
  Country: JP (occurrence: JP)
  Receive Date: 20150520
  Receipt Date: 20150520
  Transmission Date: 20150821
  Serious: Yes (Other)
  Sender: FDA-Public Use
  Company Number: JP-GLAXOSMITHKLINE-JP2015JPN066742

PATIENT
  Age: 32 Year
  Sex: Male

DRUGS (1)
  1. AVOLVE [Suspect]
     Active Substance: DUTASTERIDE
     Indication: ALOPECIA
     Dosage: UNK
     Route: 048
     Dates: start: 201407

REACTIONS (5)
  - Visual acuity reduced [Unknown]
  - Face oedema [Unknown]
  - Erythema [Unknown]
  - Off label use [Unknown]
  - Keratoconus [Unknown]

NARRATIVE: CASE EVENT DATE: 201502
